FAERS Safety Report 9225343 (Version 1)
Quarter: 2013Q2

REPORT INFORMATION
  Report Type: Spontaneous
  Country: CL (occurrence: CL)
  Receive Date: 20130411
  Receipt Date: 20130411
  Transmission Date: 20140414
  Serious: Yes (Hospitalization, Other)
  Sender: FDA-Public Use
  Company Number: CL-BAXTER-2013BAX012707

PATIENT
  Age: 51 Year
  Sex: Male

DRUGS (3)
  1. EXTRANEAL SOLUCI?N PARA DIALISIS PERITONEAL CON ICODEXTRINA 7.5% [Suspect]
     Indication: PERITONEAL DIALYSIS
     Route: 033
     Dates: start: 20130305
  2. DIANEAL PD 2 SOLUCI?N PARA DIALISIS PERITONEAL AL 1,5% [Suspect]
     Indication: PERITONEAL DIALYSIS
     Route: 033
  3. DIANEAL PD 2 SOLUCI?N PARA DIALISIS PERITONEAL AL 2,5% [Suspect]
     Indication: PERITONEAL DIALYSIS
     Route: 033

REACTIONS (4)
  - Bloody peritoneal effluent [Recovering/Resolving]
  - Hypotension [Recovered/Resolved]
  - Syncope [Recovered/Resolved]
  - Device leakage [Unknown]
